FAERS Safety Report 6125214-4 (Version None)
Quarter: 2009Q1

REPORT INFORMATION
  Report Type: 
  Country: None (occurrence: None)
  Receive Date: 20090318
  Receipt Date: 20090310
  Transmission Date: 20090719
  Serious: Yes (Hospitalization)
  Sender: FDA-Public Use
  Company Number: 2009SP005618

PATIENT
  Age: 4 Year
  Sex: Male
  Weight: 16 kg

DRUGS (5)
  1. BETAMETHASONE [Suspect]
     Indication: VIRAL PHARYNGITIS
     Dosage: 150 GTT; QD; PO ; 300 GTT; OD; PO
     Route: 048
     Dates: start: 20080102, end: 20080104
  2. BETAMETHASONE [Suspect]
     Indication: VIRAL PHARYNGITIS
     Dosage: 150 GTT; QD; PO ; 300 GTT; OD; PO
     Route: 048
     Dates: start: 20080105, end: 20080105
  3. BETAMETHASONE [Suspect]
     Indication: VIRAL PHARYNGITIS
     Dosage: 150 GTT; QD; PO ; 300 GTT; OD; PO
     Route: 048
     Dates: start: 20080106, end: 20080106
  4. ADVIL [Suspect]
     Indication: VIRAL PHARYNGITIS
     Dates: start: 20080102
  5. ACETAMINOPHEN [Suspect]
     Indication: VIRAL PHARYNGITIS
     Dates: start: 20080102

REACTIONS (7)
  - ABNORMAL FAECES [None]
  - DIARRHOEA [None]
  - GASTRITIS [None]
  - HAEMATOCHEZIA [None]
  - MIDDLE INSOMNIA [None]
  - OESOPHAGITIS [None]
  - RECTAL HAEMORRHAGE [None]
